FAERS Safety Report 11368515 (Version 5)
Quarter: 2016Q2

REPORT INFORMATION
  Report Type: Spontaneous
  Country: JP (occurrence: JP)
  Receive Date: 20150810
  Receipt Date: 20160608
  Transmission Date: 20160815
  Serious: Yes (Death, Hospitalization, Other)
  Sender: FDA-Public Use
  Company Number: ADR-2015-01501

PATIENT
  Age: 36 Year
  Sex: Female

DRUGS (1)
  1. GABALON [Suspect]
     Active Substance: BACLOFEN
     Dosage: 31.45MCG/DAY
     Route: 037
     Dates: start: 20141107, end: 20150622

REACTIONS (4)
  - Pneumonia [Fatal]
  - Asphyxia [Fatal]
  - Tonsillitis [Unknown]
  - Productive cough [Fatal]

NARRATIVE: CASE EVENT DATE: 20150622
